FAERS Safety Report 6163399-4 (Version None)
Quarter: 2009Q2

REPORT INFORMATION
  Report Type: 
  Country: None (occurrence: None)
  Receive Date: 20090422
  Receipt Date: 20090413
  Transmission Date: 20091009
  Serious: Yes (Death, Hospitalization)
  Sender: FDA-Public Use
  Company Number: PHHY2009JP13877

PATIENT
  Age: 12 Year
  Sex: Female

DRUGS (4)
  1. CARBAMAZEPINE [Suspect]
     Indication: MYOCLONIC EPILEPSY
     Dosage: UNK
  2. PHENOBARBITAL [Concomitant]
     Indication: MYOCLONIC EPILEPSY
  3. ACETAZOLAMIDE [Concomitant]
     Indication: MYOCLONIC EPILEPSY
  4. LORAZEPAM [Concomitant]
     Indication: MYOCLONIC EPILEPSY

REACTIONS (7)
  - BEDRIDDEN [None]
  - DEATH [None]
  - ELECTROENCEPHALOGRAM ABNORMAL [None]
  - GASTROINTESTINAL TUBE INSERTION [None]
  - MYOCLONIC EPILEPSY [None]
  - SPEECH DISORDER [None]
  - STATUS EPILEPTICUS [None]
